FAERS Safety Report 8773063 (Version 1)
Quarter: 2012Q4

REPORT INFORMATION
  Report Type: 
  Country: CN (occurrence: CN)
  Receive Date: 20120907
  Receipt Date: 20120907
  Transmission Date: 20130627
  Serious: Yes (Hospitalization)
  Sender: FDA-Public Use
  Company Number: CN-ROCHE-1108369

PATIENT
  Age: 50 Year
  Sex: Male

DRUGS (2)
  1. AVASTIN [Suspect]
     Indication: GASTRIC CANCER
     Route: 065
     Dates: end: 20120801
  2. 5-FU [Concomitant]
     Indication: GASTRIC CANCER

REACTIONS (6)
  - Hypertension [Not Recovered/Not Resolved]
  - Headache [Not Recovered/Not Resolved]
  - Conjunctival oedema [Not Recovered/Not Resolved]
  - Cerebral haemorrhage [Not Recovered/Not Resolved]
  - Cerebral ischaemia [Not Recovered/Not Resolved]
  - Posterior reversible encephalopathy syndrome [Not Recovered/Not Resolved]
